FAERS Safety Report 5686189 (Version 6)
Quarter: 2015Q2

REPORT INFORMATION
  Report Type: Spontaneous
  Country: JP (occurrence: None)
  Receive Date: 20041117
  Receipt Date: 20150427
  Transmission Date: 20150821
  Serious: Yes (Death)
  Sender: FDA-Public Use
  Company Number: 2004JP001945

PATIENT
  Age: 23 Year
  Sex: Female

DRUGS (2)
  1. CYCLOPHOSPHAMIDE. [Concomitant]
     Active Substance: CYCLOPHOSPHAMIDE
  2. PROGRAF [Suspect]
     Active Substance: TACROLIMUS\TACROLIMUS ANHYDROUS
     Indication: LIVER TRANSPLANT
     Dates: start: 20020426, end: 200209

REACTIONS (6)
  - Cholangitis [None]
  - Thrombotic microangiopathy [None]
  - Transplant rejection [None]
  - Biliary anastomosis complication [None]
  - Suture related complication [None]
  - Multi-organ failure [None]

NARRATIVE: CASE EVENT DATE: 2002
